FAERS Safety Report 9304816 (Version 1)
Quarter: 2013Q2

REPORT INFORMATION
  Report Type: Spontaneous
  Country: US (occurrence: None)
  Receive Date: 20130521
  Receipt Date: 20130521
  Transmission Date: 20140414
  Serious: Yes (Hospitalization)
  Sender: FDA-Public Use
  Company Number: None

PATIENT
  Age: 62 Year
  Sex: Male
  Weight: 92 kg

DRUGS (1)
  1. RISPERIDONE [Suspect]
     Route: 048
     Dates: start: 20130130, end: 20130307

REACTIONS (3)
  - Parkinsonism [None]
  - Dystonia [None]
  - Extrapyramidal disorder [None]
